FAERS Safety Report 19710510 (Version 3)
Quarter: 2022Q3

REPORT INFORMATION
  Report Type: Spontaneous
  Country: CA (occurrence: CA)
  Receive Date: 20210816
  Receipt Date: 20220909
  Transmission Date: 20221027
  Serious: Yes (Death, Hospitalization, Other)
  Sender: FDA-Public Use
  Company Number: CA-SAMSUNG BIOEPIS-SB-2021-19062

PATIENT
  Age: 65 Year
  Sex: Female
  Weight: 77 kg

DRUGS (2)
  1. INFLIXIMAB [Suspect]
     Active Substance: INFLIXIMAB
     Indication: Crohn^s disease
     Route: 042
  2. DESOXIMETASONE [Concomitant]
     Active Substance: DESOXIMETASONE
     Indication: Product used for unknown indication
     Dosage: UNKNOWN
     Route: 065

REACTIONS (24)
  - Death [Fatal]
  - Body temperature abnormal [Fatal]
  - Bone cancer [Fatal]
  - Condition aggravated [Fatal]
  - Lymphoma [Fatal]
  - Rash [Fatal]
  - Weight increased [Fatal]
  - Wound [Fatal]
  - Ankle fracture [Fatal]
  - Bone disorder [Fatal]
  - Fall [Fatal]
  - Illness [Fatal]
  - Intestinal obstruction [Fatal]
  - Mobility decreased [Fatal]
  - Postoperative wound complication [Fatal]
  - Weight bearing difficulty [Fatal]
  - Weight decreased [Fatal]
  - White blood cell count decreased [Fatal]
  - Wound secretion [Fatal]
  - Cholecystitis [Fatal]
  - Metastasis [Fatal]
  - Neoplasm progression [Fatal]
  - Off label use [Fatal]
  - Intentional product use issue [Fatal]
